FAERS Safety Report 17438711 (Version 1)
Quarter: 2020Q1

REPORT INFORMATION
  Report Type: Spontaneous
  Country: US (occurrence: US)
  Receive Date: 20200220
  Receipt Date: 20200220
  Transmission Date: 20200409
  Serious: Yes (Hospitalization)
  Sender: FDA-Public Use
  Company Number: US-ASTRAZENECA-2019SF90498

PATIENT
  Sex: Female

DRUGS (3)
  1. SYNAGIS [Suspect]
     Active Substance: PALIVIZUMAB
     Indication: HYPOPLASTIC LEFT HEART SYNDROME
     Route: 030
     Dates: start: 20191127
  2. SYNAGIS [Suspect]
     Active Substance: PALIVIZUMAB
     Indication: MITRAL VALVE STENOSIS
     Route: 030
     Dates: start: 20191127
  3. SYNAGIS [Suspect]
     Active Substance: PALIVIZUMAB
     Indication: AORTIC VALVE ATRESIA
     Route: 030
     Dates: start: 20191127

REACTIONS (1)
  - Respiratory syncytial virus infection [Unknown]
